FAERS Safety Report 4507914-2 (Version None)
Quarter: 2004Q4

REPORT INFORMATION
  Report Type: 
  Country: None (occurrence: None)
  Receive Date: 20041123
  Receipt Date: 20041116
  Transmission Date: 20050328
  Serious: Yes (Hospitalization)
  Sender: FDA-Public Use
  Company Number: FR-ROCHE-386489

PATIENT
  Age: 49 Year
  Sex: Male
  Weight: 68 kg

DRUGS (3)
  1. FORTOVASE [Suspect]
     Route: 048
     Dates: start: 20000615
  2. COMBIVIR [Suspect]
     Route: 048
     Dates: start: 19980215
  3. NORVIR [Suspect]
     Route: 048
     Dates: start: 19980215

REACTIONS (6)
  - ACUTE CORONARY SYNDROME [None]
  - ANGINA PECTORIS [None]
  - CORONARY ARTERY THROMBOSIS [None]
  - EJECTION FRACTION DECREASED [None]
  - ELECTROCARDIOGRAM T WAVE AMPLITUDE DECREASED [None]
  - ELECTROCARDIOGRAM T WAVE INVERSION [None]
